FAERS Safety Report 9235914 (Version 1)
Quarter: 2013Q1

REPORT INFORMATION
  Report Type: Spontaneous
  Country: GB (occurrence: None)
  Receive Date: 20130327
  Receipt Date: 20130327
  Transmission Date: 20140127
  Serious: Yes (Other)
  Sender: FDA-Public Use
  Company Number: 2013035167

PATIENT
  Age: 17 Year
  Sex: Female

DRUGS (17)
  1. HIZENTRA (IMMUNOGLOBULIN HUMAN NORMAL) [Suspect]
     Indication: IMMUNODEFICIENCY COMMON VARIABLE
     Route: 058
  2. SERETIDE (SERETIDE) [Concomitant]
  3. VENTOLIN (SALBUTAMOL) [Concomitant]
  4. CETIRIZINE (CETIRIZINE) [Concomitant]
  5. PEPTAC (PEPTAC) [Concomitant]
  6. MANUEL (ISOPROPANOL) [Concomitant]
  7. ANTIHISTAMINES (ANTIHISTAMINES) [Concomitant]
  8. PARACETAMOL (PARACETAMOL) [Concomitant]
  9. PIRITON (CHLORPHENAMINE MALEATE) [Concomitant]
  10. SERETIDE [Concomitant]
  11. VENTOLIN (SALBUTAMOL) [Concomitant]
  12. CETIRIZINE (CETIRIZINE) [Concomitant]
  13. PEPTAC (PEPTAC) [Concomitant]
  14. MANUGEL (ISOPROPANOL) [Concomitant]
  15. ANTIHISTAMINES (ANTIHISTAMINES) [Concomitant]
  16. PARACETAMOL (PARACETAMOL) [Concomitant]
  17. PIRITON (CHLORPHENAMINE MALEATE) [Concomitant]

REACTIONS (6)
  - Pain in extremity [None]
  - Pain [None]
  - Nodule [None]
  - Infusion site pruritus [None]
  - Infusion site erythema [None]
  - Infusion site pain [None]
